FAERS Safety Report 8604649-1 (Version None)
Quarter: 2012Q3

REPORT INFORMATION
  Report Type: 
  Country: None (occurrence: None)
  Receive Date: 20120808
  Receipt Date: 20120808
  Transmission Date: 20120928
  Serious: Yes (Hospitalization)
  Sender: FDA-Public Use
  Company Number: None

PATIENT
  Age: 41 Year
  Sex: Female
  Weight: 68.9 kg

DRUGS (1)
  1. ERTAPENEM 1 GRAM INVANZ -MERCK- [Suspect]

REACTIONS (1)
  - CONVULSION [None]
